FAERS Safety Report 5807358-7 (Version None)
Quarter: 2008Q3

REPORT INFORMATION
  Report Type: 
  Country: None (occurrence: None)
  Receive Date: 20080711
  Receipt Date: 20080702
  Transmission Date: 20090109
  Serious: Yes (Hospitalization)
  Sender: FDA-Public Use
  Company Number: FI-JNJFOC-20080605418

PATIENT
  Sex: Female

DRUGS (1)
  1. DOXORUBICIN HCL [Suspect]
     Indication: PERITONEAL CARCINOMA
     Route: 042

REACTIONS (3)
  - OFF LABEL USE [None]
  - SKIN DISORDER [None]
  - STOMATITIS [None]
